FAERS Safety Report 12463901 (Version 2)
Quarter: 2016Q2

REPORT INFORMATION
  Report Type: Spontaneous
  Country: JP (occurrence: JP)
  Receive Date: 20160614
  Receipt Date: 20160623
  Transmission Date: 20160815
  Serious: Yes (Death, Hospitalization)
  Sender: FDA-Public Use
  Company Number: JP-ROCHE-1775518

PATIENT
  Age: 38 Year
  Sex: Male

DRUGS (1)
  1. ACTEMRA [Suspect]
     Active Substance: TOCILIZUMAB
     Indication: GRANULOMATOSIS WITH POLYANGIITIS
     Route: 041
     Dates: start: 20150627, end: 20150627

REACTIONS (4)
  - Abdominal pain [Not Recovered/Not Resolved]
  - Granulomatosis with polyangiitis [Fatal]
  - Cardiac failure [Fatal]
  - Off label use [Unknown]
